FAERS Safety Report 6272423-X (Version None)
Quarter: 2009Q3

REPORT INFORMATION
  Report Type: 
  Country: None (occurrence: None)
  Receive Date: 20090717
  Receipt Date: 20090708
  Transmission Date: 20100115
  Serious: Yes (Hospitalization, Other)
  Sender: FDA-Public Use
  Company Number: DE-MERCK-0903DEU00146

PATIENT
  Age: 54 Year
  Sex: Male

DRUGS (6)
  1. FOSAMAX [Suspect]
     Indication: OSTEOPOROSIS
     Route: 048
     Dates: start: 20040501, end: 20041101
  2. DOXEPIN HYDROCHLORIDE [Concomitant]
     Indication: DEPRESSION
     Route: 065
     Dates: start: 20020801
  3. PREGABALIN [Concomitant]
     Indication: NEURALGIA
     Route: 065
     Dates: start: 20040801
  4. ANALGESIC (UNSPECIFIED) [Concomitant]
     Indication: PAIN
     Route: 065
     Dates: start: 20020701
  5. FLUPIRTINE MALEATE [Concomitant]
     Indication: PAIN
     Route: 065
     Dates: start: 20000101
  6. ZOLEDRONIC ACID [Concomitant]
     Indication: LANGERHANS' CELL GRANULOMATOSIS
     Route: 042
     Dates: start: 20050101, end: 20070301

REACTIONS (7)
  - ANGIOPATHY [None]
  - ANXIETY [None]
  - DEPRESSION [None]
  - FEAR [None]
  - OSTEONECROSIS [None]
  - PAIN [None]
  - RENAL FAILURE CHRONIC [None]
